FAERS Safety Report 4902748-9 (Version None)
Quarter: 2006Q1

REPORT INFORMATION
  Report Type: 
  Country: None (occurrence: None)
  Receive Date: 20060207
  Receipt Date: 20051128
  Transmission Date: 20060701
  Serious: Yes (Other)
  Sender: FDA-Public Use
  Company Number: CN-MERCK-0511CHN00025M

PATIENT
  Age: 28 Year
  Sex: Female

DRUGS (1)
  1. PROPECIA [Suspect]
     Indication: ALOPECIA
     Route: 065

REACTIONS (3)
  - ABORTION INDUCED [None]
  - DRUG EXPOSURE DURING PREGNANCY [None]
  - TRANSMISSION OF DRUG VIA SEMEN [None]
